FAERS Safety Report 11096094 (Version 1)
Quarter: 2015Q2

REPORT INFORMATION
  Report Type: Spontaneous
  Country: FR (occurrence: FR)
  Receive Date: 20150507
  Receipt Date: 20150507
  Transmission Date: 20150821
  Serious: Yes (Life-Threatening, Hospitalization)
  Sender: FDA-Public Use
  Company Number: FR-AMGEN-FRASP2015042167

PATIENT
  Age: 76 Year
  Sex: Male

DRUGS (9)
  1. SIMVASTATIN. [Concomitant]
     Active Substance: SIMVASTATIN
     Dosage: UNK
  2. SERETIDE [Concomitant]
     Active Substance: FLUTICASONE FUROATE\SALMETEROL XINAFOATE
     Dosage: UNK
  3. IVABRADINE [Suspect]
     Active Substance: IVABRADINE
     Indication: PRODUCT USED FOR UNKNOWN INDICATION
     Dosage: 2.5 MG, BID
     Route: 048
     Dates: end: 20141222
  4. VERAPAMIL [Suspect]
     Active Substance: VERAPAMIL HYDROCHLORIDE
     Indication: PRODUCT USED FOR UNKNOWN INDICATION
     Dosage: 240 MG, QD
     Route: 048
     Dates: end: 20141222
  5. DUOPLAVIN [Concomitant]
     Active Substance: ASPIRIN\CLOPIDOGREL
     Dosage: UNK
  6. ZOLPIDEM [Concomitant]
     Active Substance: ZOLPIDEM\ZOLPIDEM TARTRATE
     Dosage: UNK
  7. NATISPRAY [Concomitant]
     Active Substance: NITROGLYCERIN
     Dosage: UNK
  8. TRAMADOL [Suspect]
     Active Substance: TRAMADOL
     Indication: PRODUCT USED FOR UNKNOWN INDICATION
     Dosage: 200-300UNK
     Route: 048
     Dates: start: 20141120, end: 20141121
  9. MOVICOL [Concomitant]
     Active Substance: POLYETHYLENE GLYCOL 3350\POTASSIUM CHLORIDE\SODIUM BICARBONATE\SODIUM CHLORIDE
     Dosage: UNK

REACTIONS (8)
  - General physical health deterioration [Recovered/Resolved]
  - Decreased appetite [Recovered/Resolved]
  - Inflammation [Recovered/Resolved]
  - Cardiogenic shock [Recovered/Resolved]
  - Multi-organ failure [Recovered/Resolved]
  - Bradycardia [Recovered/Resolved]
  - Hypotension [Recovered/Resolved]
  - Livedo reticularis [Recovered/Resolved]

NARRATIVE: CASE EVENT DATE: 20141022
